FAERS Safety Report 11548301 (Version 1)
Quarter: 2015Q3

REPORT INFORMATION
  Report Type: Spontaneous
  Country: US (occurrence: US)
  Receive Date: 20150924
  Receipt Date: 20150924
  Transmission Date: 20151125
  Serious: No
  Sender: FDA-Public Use
  Company Number: US-INCYTE CORPORATION-2015IN001215

PATIENT
  Age: 67 Year
  Sex: Female

DRUGS (14)
  1. JAKAFI [Suspect]
     Active Substance: RUXOLITINIB
     Dosage: 20 MG, BID
     Route: 048
     Dates: start: 201401
  2. CELEBREX [Concomitant]
     Active Substance: CELECOXIB
  3. FOLIC ACID. [Concomitant]
     Active Substance: FOLIC ACID
  4. PROCRIT [Concomitant]
     Active Substance: ERYTHROPOIETIN
  5. DOXYCYCLINE. [Concomitant]
     Active Substance: DOXYCYCLINE
  6. LEVOTHYROXINE. [Concomitant]
     Active Substance: LEVOTHYROXINE
  7. SIMVASTATIN. [Concomitant]
     Active Substance: SIMVASTATIN
  8. NITROGLYCERINE [Concomitant]
     Active Substance: NITROGLYCERIN
  9. GABAPENTIN. [Concomitant]
     Active Substance: GABAPENTIN
  10. AVAR [Concomitant]
     Active Substance: SULFACETAMIDE SODIUM\SULFUR
  11. DANAZOL. [Concomitant]
     Active Substance: DANAZOL
  12. PLAVIX [Concomitant]
     Active Substance: CLOPIDOGREL BISULFATE
  13. IMDUR [Concomitant]
     Active Substance: ISOSORBIDE MONONITRATE
  14. COREG [Concomitant]
     Active Substance: CARVEDILOL

REACTIONS (1)
  - Rosacea [Unknown]

NARRATIVE: CASE EVENT DATE: 20150316
